FAERS Safety Report 4774131-0 (Version None)
Quarter: 2005Q3

REPORT INFORMATION
  Report Type: 
  Country: None (occurrence: None)
  Receive Date: 20050921
  Receipt Date: 20050913
  Transmission Date: 20060218
  Serious: Yes (Hospitalization)
  Sender: FDA-Public Use
  Company Number: FR-RB-2062-2005

PATIENT
  Age: 31 Year
  Sex: Male

DRUGS (1)
  1. BUPRENORPHINE [Suspect]
     Indication: DRUG USE FOR UNKNOWN INDICATION
     Dosage: DOSE UNKNOWN, POSSIBLE ROUTE = INJECTION

REACTIONS (1)
  - ENDOCARDITIS [None]
